FAERS Safety Report 5768188-8 (Version None)
Quarter: 2008Q2

REPORT INFORMATION
  Report Type: 
  Country: None (occurrence: None)
  Receive Date: 20080609
  Receipt Date: 20080526
  Transmission Date: 20081010
  Serious: Yes (Hospitalization, Other)
  Sender: FDA-Public Use
  Company Number: 2008BI009081

PATIENT
  Age: 28 Year
  Sex: Female
  Weight: 77.1115 kg

DRUGS (8)
  1. TYSABRI [Suspect]
     Indication: MULTIPLE SCLEROSIS
     Dosage: 300 MG;QM;IV
     Route: 042
     Dates: start: 20071107
  2. HEPARIN [Concomitant]
  3. EMPRACET [Concomitant]
  4. SERAX [Concomitant]
  5. NEXIUM [Concomitant]
  6. IMOVANE [Concomitant]
  7. SOLU-MEDROL [Concomitant]
  8. NAPROSYN [Concomitant]

REACTIONS (15)
  - ABASIA [None]
  - ABDOMINAL PAIN UPPER [None]
  - BETA HAEMOLYTIC STREPTOCOCCAL INFECTION [None]
  - DEMYELINATING POLYNEUROPATHY [None]
  - DRUG HYPERSENSITIVITY [None]
  - GUILLAIN-BARRE SYNDROME [None]
  - HYPOAESTHESIA [None]
  - LOSS OF CONSCIOUSNESS [None]
  - MASTOID DISORDER [None]
  - MULTIPLE SCLEROSIS RELAPSE [None]
  - PARAESTHESIA [None]
  - QUADRIPARESIS [None]
  - STEVENS-JOHNSON SYNDROME [None]
  - THROMBOPHLEBITIS [None]
  - WOUND [None]
